FAERS Safety Report 19110822 (Version 1)
Quarter: 2021Q2

REPORT INFORMATION
  Report Type: Other
  Country: PT (occurrence: PT)
  Receive Date: 20210409
  Receipt Date: 20210409
  Transmission Date: 20210717
  Serious: Yes (Hospitalization)
  Sender: FDA-Public Use
  Company Number: PT-ROCHE-2801895

PATIENT

DRUGS (1)
  1. RITUXIMAB. [Suspect]
     Active Substance: RITUXIMAB
     Indication: SYSTEMIC LUPUS ERYTHEMATOSUS
     Dosage: INDUCTION REGIMEN WAS MAINLY 1G 15 DAYS APART
     Route: 065

REACTIONS (7)
  - Hypogammaglobulinaemia [Unknown]
  - Therapy non-responder [Unknown]
  - Hypersensitivity [Unknown]
  - Infection [Unknown]
  - Cardiac failure acute [Unknown]
  - Off label use [Unknown]
  - Neutropenia [Unknown]
